FAERS Safety Report 6802498-8 (Version None)
Quarter: 2010Q2

REPORT INFORMATION
  Report Type: 
  Country: None (occurrence: None)
  Receive Date: 20100628
  Receipt Date: 20100611
  Transmission Date: 20101027
  Serious: Yes (Hospitalization, Other)
  Sender: FDA-Public Use
  Company Number: US-BAYER-200942888NA

PATIENT
  Age: 25 Year
  Sex: Female
  Weight: 84 kg

DRUGS (22)
  1. YAZ [Suspect]
     Indication: ACNE
     Route: 048
     Dates: start: 20060601, end: 20061001
  2. YAZ [Suspect]
     Route: 048
     Dates: start: 20080201, end: 20080601
  3. YASMIN [Suspect]
     Indication: ACNE
     Dates: start: 20070601, end: 20071201
  4. DOXYCYCLINE [Concomitant]
     Dates: start: 20051201
  5. DOXYCYCLINE [Concomitant]
     Dates: start: 20060201
  6. DOXYCYCLINE [Concomitant]
     Dates: start: 20060701
  7. DOXYCYCLINE [Concomitant]
     Dates: start: 20100101
  8. DOXYCYCLINE [Concomitant]
     Dates: start: 20091201
  9. DOXYCYCLINE [Concomitant]
     Dates: start: 20060801
  10. DOXYCYCLINE [Concomitant]
     Dates: start: 20070301
  11. DOXYCYCLINE [Concomitant]
     Dates: start: 20070201
  12. DOXYCYCLINE [Concomitant]
     Dates: start: 20061201
  13. DOXYCYCLINE [Concomitant]
     Dates: start: 20060901
  14. CLINDAMYCIN [Concomitant]
     Dates: start: 20060301
  15. CLINDAMYCIN [Concomitant]
     Dates: start: 20061201
  16. CLINDAMYCIN [Concomitant]
     Dates: start: 20060401
  17. CLINDAMYCIN [Concomitant]
     Dates: start: 20070301
  18. MINOCYCLINE [Concomitant]
     Dates: start: 20060101
  19. ALEVE (CAPLET) [Concomitant]
     Dates: start: 19940101
  20. DIFFERIN [Concomitant]
     Dates: start: 20051201, end: 20060701
  21. MULTI-VITAMIN [Concomitant]
     Dosage: ONE TABLET DAILY
  22. AMNESTEEM [Concomitant]
     Indication: ACNE

REACTIONS (5)
  - CHEST PAIN [None]
  - DYSPNOEA [None]
  - MOBILITY DECREASED [None]
  - MYOCARDIAL INFARCTION [None]
  - SYNCOPE [None]
